FAERS Safety Report 5076284-6 (Version None)
Quarter: 2006Q3

REPORT INFORMATION
  Report Type: 
  Country: None (occurrence: None)
  Receive Date: 20060804
  Receipt Date: 20060719
  Transmission Date: 20061208
  Serious: Yes (Hospitalization)
  Sender: FDA-Public Use
  Company Number: DSA_28357_2006

PATIENT
  Age: 52 Year
  Sex: Male

DRUGS (16)
  1. TEMESTA [Suspect]
     Indication: ANXIETY
     Dosage: 2 MG Q DAY PO
     Route: 048
     Dates: start: 20060426, end: 20060430
  2. TEMESTA [Suspect]
     Indication: DEPRESSION
     Dosage: 2 MG Q DAY PO
     Route: 048
     Dates: start: 20060426, end: 20060430
  3. TEMESTA [Suspect]
     Indication: ANXIETY
     Dosage: 1.5 MG Q DAY PO
     Route: 048
     Dates: start: 20060501, end: 20060503
  4. TEMESTA [Suspect]
     Indication: DEPRESSION
     Dosage: 1.5 MG Q DAY PO
     Route: 048
     Dates: start: 20060501, end: 20060503
  5. TEMESTA [Suspect]
     Indication: ANXIETY
     Dosage: 1 MG Q DAY PO
     Route: 048
     Dates: start: 20060504, end: 20060507
  6. TEMESTA [Suspect]
     Indication: DEPRESSION
     Dosage: 1 MG Q DAY PO
     Route: 048
     Dates: start: 20060504, end: 20060507
  7. TEMESTA [Suspect]
     Indication: ANXIETY
     Dosage: 0.5 MG Q DAY PO
     Route: 048
     Dates: start: 20060508, end: 20060511
  8. TEMESTA [Suspect]
     Indication: DEPRESSION
     Dosage: 0.5 MG Q DAY PO
     Route: 048
     Dates: start: 20060508, end: 20060511
  9. SERESTA [Suspect]
     Dosage: DF
     Dates: start: 20060301, end: 20060425
  10. ZOLOFT [Suspect]
     Dosage: 50 MG Q DAY PO
     Route: 048
     Dates: start: 20060424, end: 20060428
  11. ZOLOFT [Suspect]
     Indication: ANXIETY
     Dosage: 100 MG Q DAY PO
     Route: 048
     Dates: start: 20060429
  12. ZOLOFT [Suspect]
     Indication: DEPRESSION
     Dosage: 100 MG Q DAY PO
     Route: 048
     Dates: start: 20060429
  13. BUSPAR [Suspect]
     Indication: ANXIETY
     Dosage: 10 MG Q DAY PO
     Route: 048
     Dates: start: 20060101, end: 20060515
  14. BUSPAR [Suspect]
     Indication: DEPRESSION
     Dosage: 10 MG Q DAY PO
     Route: 048
     Dates: start: 20060101, end: 20060515
  15. BUSPAR [Suspect]
     Indication: ANXIETY
     Dosage: 20 MG Q DAY PO
     Route: 048
     Dates: start: 20050101, end: 20051231
  16. BUSPAR [Suspect]
     Indication: DEPRESSION
     Dosage: 20 MG Q DAY PO
     Route: 048
     Dates: start: 20050101, end: 20051231

REACTIONS (5)
  - DRUG INTERACTION [None]
  - DRUG WITHDRAWAL SYNDROME [None]
  - GASTROINTESTINAL HYPERMOTILITY [None]
  - SEROTONIN SYNDROME [None]
  - SLEEP DISORDER [None]
